FAERS Safety Report 6916645-0 (Version None)
Quarter: 2010Q3

REPORT INFORMATION
  Report Type: 
  Country: None (occurrence: None)
  Receive Date: 20100810
  Receipt Date: 20100802
  Transmission Date: 20110219
  Serious: Yes (Other)
  Sender: FDA-Public Use
  Company Number: US-ROCHE-708084

PATIENT
  Sex: Male

DRUGS (2)
  1. PEGINTERFERON ALFA-2A [Suspect]
     Indication: HEPATITIS C
     Dosage: FORM- PRE FILLED SYRINGE, WEEK 17 OF TREATMENT
     Route: 065
     Dates: start: 20100409
  2. RIBAVIRIN [Suspect]
     Indication: HEPATITIS C
     Dosage: DIVIDED DOSES, WEEK 17 OF TREATMENT
     Route: 065
     Dates: start: 20100409

REACTIONS (5)
  - ANXIETY DISORDER [None]
  - BLOOD URIC ACID INCREASED [None]
  - HEPATIC NEOPLASM [None]
  - PLATELET COUNT DECREASED [None]
  - RASH [None]
